FAERS Safety Report 15706770 (Version 3)
Quarter: 2019Q1

REPORT INFORMATION
  Report Type: Spontaneous
  Country: US (occurrence: US)
  Receive Date: 20181210
  Receipt Date: 20190320
  Transmission Date: 20190417
  Serious: Yes (Hospitalization)
  Sender: FDA-Public Use
  Company Number: US-ACTELION-A-NJ2018-183413

PATIENT
  Sex: Female
  Weight: 48.98 kg

DRUGS (5)
  1. COUMADIN [Concomitant]
     Active Substance: WARFARIN SODIUM
  2. TADALAFIL. [Concomitant]
     Active Substance: TADALAFIL
  3. NIFEDIPINE. [Concomitant]
     Active Substance: NIFEDIPINE
  4. TRACLEER [Suspect]
     Active Substance: BOSENTAN
     Indication: PULMONARY HYPERTENSION
     Dosage: 125 MG, BID
     Route: 048
  5. REMODULIN [Concomitant]
     Active Substance: TREPROSTINIL
     Dosage: UNK
     Dates: end: 20190305

REACTIONS (3)
  - Hospice care [Unknown]
  - Sepsis [Unknown]
  - Fall [Unknown]
